FAERS Safety Report 24650039 (Version 1)
Quarter: 2024Q4

REPORT INFORMATION
  Report Type: Spontaneous
  Country: FR (occurrence: FR)
  Receive Date: 20241122
  Receipt Date: 20241122
  Transmission Date: 20250114
  Serious: Yes (Other)
  Sender: AUROBINDO
  Company Number: FR-AUROBINDO-AUR-APL-2024-056810

PATIENT
  Age: 61 Year

DRUGS (1)
  1. LAMOTRIGINE [Suspect]
     Active Substance: LAMOTRIGINE
     Indication: Depression
     Dosage: 100 MILLIGRAM, ONCE A DAY
     Route: 065

REACTIONS (4)
  - Severe cutaneous adverse reaction [Unknown]
  - Odynophagia [Unknown]
  - Pyrexia [Unknown]
  - Drug ineffective [Unknown]
